FAERS Safety Report 4852890-6 (Version None)
Quarter: 2005Q4

REPORT INFORMATION
  Report Type: 
  Country: None (occurrence: None)
  Receive Date: 20051212
  Receipt Date: 20051108
  Transmission Date: 20060501
  Serious: Yes (Death)
  Sender: FDA-Public Use
  Company Number: MK200512-0076-1

PATIENT
  Age: 31 Year

DRUGS (2)
  1. ACETAMINOPHEN W/ CODEINE TAB [Suspect]
     Dates: end: 20040101
  2. CHLORDIAZEPOXIDE [Suspect]

REACTIONS (1)
  - MULTIPLE DRUG OVERDOSE INTENTIONAL [None]
